FAERS Safety Report 8973224 (Version 1)
Quarter: 2012Q4

REPORT INFORMATION
  Report Type: 
  Country: FR (occurrence: FR)
  Receive Date: 20121219
  Receipt Date: 20121219
  Transmission Date: 20130627
  Serious: Yes (Other)
  Sender: FDA-Public Use
  Company Number: FR-MERCK-1212FRA005837

PATIENT
  Age: 45 Year
  Sex: Female

DRUGS (4)
  1. REBETOL [Suspect]
     Indication: HEPATITIS C
     Dosage: UNK
     Route: 048
  2. REBETOL [Suspect]
     Dosage: 1000 mg, UNK
     Route: 048
  3. VIRAFERONPEG [Suspect]
     Indication: HEPATITIS C
     Dosage: UNK
     Route: 058
  4. VIRAFERONPEG [Suspect]
     Dosage: 180 Microgram, UNK
     Route: 058

REACTIONS (2)
  - Suicidal ideation [Unknown]
  - Depression [Unknown]
